FAERS Safety Report 24172845 (Version 1)
Quarter: 2024Q3

REPORT INFORMATION
  Report Type: Spontaneous
  Country: US (occurrence: None)
  Receive Date: 20240805
  Receipt Date: 20240805
  Transmission Date: 20241016
  Serious: No
  Sender: ASTRAZENECA
  Company Number: 2024A174158

PATIENT
  Sex: Female

DRUGS (1)
  1. SYMBICORT [Suspect]
     Active Substance: BUDESONIDE\FORMOTEROL FUMARATE DIHYDRATE
     Dosage: UNK,UNK UNKNOWN
     Route: 055

REACTIONS (4)
  - Cardiac disorder [Unknown]
  - Chronic obstructive pulmonary disease [Unknown]
  - Drug dose omission by device [Unknown]
  - Device malfunction [Unknown]
